FAERS Safety Report 19072953 (Version 1)
Quarter: 2021Q1

REPORT INFORMATION
  Report Type: Spontaneous
  Country: IT (occurrence: IT)
  Receive Date: 20210330
  Receipt Date: 20210330
  Transmission Date: 20210420
  Serious: Yes (Other)
  Sender: FDA-Public Use
  Company Number: IT-ASTRAZENECA-2021A150993

PATIENT
  Age: 66 Year
  Sex: Female

DRUGS (8)
  1. CAELYX [Suspect]
     Active Substance: DOXORUBICIN HYDROCHLORIDE
     Indication: OVARIAN CANCER
     Dosage: 38.0MG EVERY CYCLE
     Route: 042
     Dates: start: 20160518, end: 20160902
  2. LYNPARZA [Suspect]
     Active Substance: OLAPARIB
     Indication: OVARIAN CANCER
     Route: 048
     Dates: start: 20161021, end: 20171025
  3. CARBOPLATIN. [Suspect]
     Active Substance: CARBOPLATIN
     Indication: OVARIAN CANCER
     Dosage: 450.0MG EVERY CYCLE
     Route: 042
     Dates: start: 20150109, end: 20150504
  4. CARBOPLATIN. [Suspect]
     Active Substance: CARBOPLATIN
     Indication: OVARIAN CANCER
     Dosage: 370.0MG EVERY CYCLE
     Route: 042
     Dates: start: 20160518, end: 20160902
  5. CARBOPLATIN. [Suspect]
     Active Substance: CARBOPLATIN
     Indication: BREAST CANCER
     Dosage: 370.0MG EVERY CYCLE
     Route: 042
     Dates: start: 20160518, end: 20160902
  6. PROCAPTAN [Concomitant]
     Active Substance: PERINDOPRIL ERBUMINE
  7. PACLITAXEL. [Suspect]
     Active Substance: PACLITAXEL
     Indication: BREAST CANCER
     Dosage: 250.0MG EVERY CYCLE
     Route: 042
     Dates: start: 20150109, end: 20150504
  8. CARBOPLATIN. [Suspect]
     Active Substance: CARBOPLATIN
     Indication: BREAST CANCER
     Dosage: 450.0MG EVERY CYCLE
     Route: 042
     Dates: start: 20150109, end: 20150504

REACTIONS (1)
  - Acute myeloid leukaemia [Not Recovered/Not Resolved]

NARRATIVE: CASE EVENT DATE: 20200901
